FAERS Safety Report 9722370 (Version 1)
Quarter: 2013Q4

REPORT INFORMATION
  Report Type: Spontaneous
  Country: US (occurrence: US)
  Receive Date: 20131202
  Receipt Date: 20131202
  Transmission Date: 20140711
  Serious: Yes (Hospitalization)
  Sender: FDA-Public Use
  Company Number: US-JNJFOC-20131114838

PATIENT
  Sex: Male
  Weight: 80.8 kg

DRUGS (1)
  1. XARELTO [Suspect]
     Indication: PULMONARY EMBOLISM
     Dosage: Q 12HOURS
     Route: 048
     Dates: start: 20130710, end: 20130719

REACTIONS (3)
  - Abdominal pain [Unknown]
  - Haematochezia [Unknown]
  - Platelet count decreased [Unknown]
